FAERS Safety Report 14113408 (Version 1)
Quarter: 2017Q4

REPORT INFORMATION
  Report Type: Spontaneous
  Country: US (occurrence: US)
  Receive Date: 20171021
  Receipt Date: 20171021
  Transmission Date: 20180321
  Serious: Yes (Other)
  Sender: FDA-Public Use
  Company Number: None

PATIENT
  Age: 56 Year
  Sex: Female
  Weight: 53.1 kg

DRUGS (2)
  1. PROBIOTIC [Concomitant]
     Active Substance: PROBIOTICS NOS
  2. CIPROFLOXACIN HCL 500MG TAB [Suspect]
     Active Substance: CIPROFLOXACIN
     Indication: URINARY TRACT INFECTION
     Dosage: ?          QUANTITY:14 TABLET(S);?
     Route: 048
     Dates: start: 20171011, end: 20171013

REACTIONS (5)
  - Palpitations [None]
  - Confusional state [None]
  - Headache [None]
  - Drug ineffective [None]
  - Disturbance in attention [None]

NARRATIVE: CASE EVENT DATE: 20171014
